FAERS Safety Report 9169742 (Version 1)
Quarter: 2013Q1

REPORT INFORMATION
  Report Type: Spontaneous
  Country: US (occurrence: US)
  Receive Date: 20130318
  Receipt Date: 20130318
  Transmission Date: 20140127
  Serious: Yes (Death)
  Sender: FDA-Public Use
  Company Number: US-B.I. PHARMACEUTICALS,INC./RIDGEFIELD-2013-BI-06767BP

PATIENT
  Age: 85 Year
  Sex: Male

DRUGS (2)
  1. COMBIVENT [Suspect]
     Route: 055
     Dates: start: 201011
  2. PRADAXA [Suspect]
     Route: 048
     Dates: start: 201209

REACTIONS (1)
  - Cardiac disorder [Fatal]
